FAERS Safety Report 5775062-X (Version None)
Quarter: 2008Q2

REPORT INFORMATION
  Report Type: 
  Country: None (occurrence: None)
  Receive Date: 20080617
  Receipt Date: 20080606
  Transmission Date: 20081010
  Serious: Yes (Hospitalization)
  Sender: FDA-Public Use
  Company Number: GB-JNJFOC-20050402151

PATIENT
  Sex: Female

DRUGS (8)
  1. INFLIXIMAB [Suspect]
     Indication: SCLERODERMA
     Dosage: 3RD INFUSION.
     Route: 042
  2. CALCICHEW [Concomitant]
     Indication: SCLERODERMA
     Route: 048
  3. PREDNISOLONE [Concomitant]
     Indication: SCLERODERMA
     Route: 048
  4. CLIMESSE [Concomitant]
     Indication: SCLERODERMA
     Route: 048
  5. LANSOPRAZOLE [Concomitant]
     Indication: SCLERODERMA
     Route: 048
  6. PERIDOPRIL [Concomitant]
     Indication: SCLERODERMA
     Route: 048
  7. COOZAAR [Concomitant]
     Indication: SCLERODERMA
     Route: 048
  8. ACETAMINOPHEN [Concomitant]
     Route: 048

REACTIONS (5)
  - DYSARTHRIA [None]
  - FEELING COLD [None]
  - FEELING HOT [None]
  - INFUSION RELATED REACTION [None]
  - PAIN [None]
